FAERS Safety Report 13965104 (Version 2)
Quarter: 2018Q3

REPORT INFORMATION
  Report Type: Spontaneous
  Country: US (occurrence: US)
  Receive Date: 20170913
  Receipt Date: 20180906
  Transmission Date: 20181010
  Serious: No
  Sender: FDA-Public Use
  Company Number: US-PERRIGO-17US003036

PATIENT
  Age: 53 Year
  Sex: Female
  Weight: 70.3 kg

DRUGS (7)
  1. EVAMIST [Suspect]
     Active Substance: ESTRADIOL
     Dosage: UNK, QD
     Route: 062
     Dates: start: 20180401, end: 20180408
  2. EVAMIST [Suspect]
     Active Substance: ESTRADIOL
     Indication: MENOPAUSAL SYMPTOMS
     Dosage: 3.06 MG, QD
     Route: 062
     Dates: start: 2014, end: 20170321
  3. EVAMIST [Suspect]
     Active Substance: ESTRADIOL
     Dosage: 3.06 MG, QD
     Route: 062
     Dates: start: 20180409, end: 20180414
  4. EVAMIST [Suspect]
     Active Substance: ESTRADIOL
     Dosage: UNK, QD
     Route: 062
     Dates: start: 20180415, end: 20180418
  5. EVAMIST [Suspect]
     Active Substance: ESTRADIOL
     Indication: METRORRHAGIA
     Dosage: 3.06 MG, QD
     Route: 062
     Dates: start: 201704, end: 20180331
  6. EVAMIST [Suspect]
     Active Substance: ESTRADIOL
     Indication: HOT FLUSH
     Dosage: UNKNOWN, QD
     Route: 062
     Dates: start: 20170322, end: 20170404
  7. EVAMIST [Suspect]
     Active Substance: ESTRADIOL
     Dosage: 3.06 MG, QD
     Route: 062
     Dates: start: 20180419

REACTIONS (2)
  - Underdose [Recovered/Resolved]
  - Drug ineffective [Unknown]

NARRATIVE: CASE EVENT DATE: 20170322
